FAERS Safety Report 19670390 (Version 1)
Quarter: 2021Q3

REPORT INFORMATION
  Report Type: Report from Study
  Country: US (occurrence: US)
  Receive Date: 20210806
  Receipt Date: 20210806
  Transmission Date: 20211014
  Serious: No
  Sender: FDA-Public Use
  Company Number: US-SAOL THERAPEUTICS-2021SAO00043

PATIENT
  Age: 54 Year
  Sex: Male
  Weight: 121.09 kg

DRUGS (2)
  1. LIORESAL [Suspect]
     Active Substance: BACLOFEN
     Dosage: 124.88 ?G, \DAY AS OF 08?JUN?2017
     Route: 037
     Dates: end: 20170616
  2. LIORESAL [Suspect]
     Active Substance: BACLOFEN
     Dosage: 95.17 ?G, \DAY 24% DECREASE
     Route: 037
     Dates: start: 20170616

REACTIONS (1)
  - Implant site infection [Recovered/Resolved]

NARRATIVE: CASE EVENT DATE: 20170616
